FAERS Safety Report 18491287 (Version 8)
Quarter: 2021Q3

REPORT INFORMATION
  Report Type: Report from Study
  Country: JP (occurrence: JP)
  Receive Date: 20201111
  Receipt Date: 20210715
  Transmission Date: 20211014
  Serious: Yes (Hospitalization)
  Sender: FDA-Public Use
  Company Number: JP-EISAI MEDICAL RESEARCH-EC-2020-083543

PATIENT
  Age: 73 Year
  Sex: Male
  Weight: 63.2 kg

DRUGS (15)
  1. BIO?THREE [Concomitant]
     Active Substance: HERBALS
     Dates: start: 20200507
  2. LANTUS [Concomitant]
     Active Substance: INSULIN GLARGINE
     Route: 058
     Dates: start: 20201020
  3. LENVATINIB [Suspect]
     Active Substance: LENVATINIB
     Indication: NON-SMALL CELL LUNG CANCER METASTATIC
     Dosage: FLUCTUATED DOSE
     Route: 048
     Dates: start: 20200414, end: 20201105
  4. DENOTAS CHEWABLE COMBINATION TABLETS [Concomitant]
     Active Substance: CALCIUM CARBONATE\CHOLECALCIFEROL\MAGNESIUM CARBONATE
     Dates: start: 20190619
  5. RESTAMIN [Concomitant]
     Active Substance: DIPHENHYDRAMINE
     Dates: start: 20200811
  6. NIZORAL [Concomitant]
     Active Substance: KETOCONAZOLE
     Dates: start: 20200811, end: 20201104
  7. THYRADIN?S [Concomitant]
     Active Substance: LEVOTHYROXINE
     Dates: start: 20200811
  8. LENVATINIB [Suspect]
     Active Substance: LENVATINIB
     Route: 048
     Dates: start: 20201106, end: 20201106
  9. PEMBROLIZUMAB. [Suspect]
     Active Substance: PEMBROLIZUMAB
     Route: 041
     Dates: start: 20201020, end: 20201020
  10. SATOSALBE [Concomitant]
     Active Substance: ZINC OXIDE
     Dates: start: 20200501
  11. PEMBROLIZUMAB. [Suspect]
     Active Substance: PEMBROLIZUMAB
     Indication: NON-SMALL CELL LUNG CANCER METASTATIC
     Route: 041
     Dates: start: 20200414, end: 20200929
  12. RANMARK [Concomitant]
     Active Substance: DENOSUMAB
     Route: 030
     Dates: start: 20180619
  13. HEPARINOID [Concomitant]
     Active Substance: CHONDROITIN SULFATE (BOVINE)
     Dates: start: 20200421
  14. HUMALOG [Concomitant]
     Active Substance: INSULIN LISPRO
     Route: 058
     Dates: start: 20201020, end: 20201106
  15. ANTEBATE [Concomitant]
     Active Substance: BETAMETHASONE DIPROPIONATE
     Dates: start: 20200501

REACTIONS (1)
  - Hyponatraemia [Recovering/Resolving]

NARRATIVE: CASE EVENT DATE: 20201106
